FAERS Safety Report 11603753 (Version 1)
Quarter: 2015Q4

REPORT INFORMATION
  Report Type: Spontaneous
  Country: US (occurrence: US)
  Receive Date: 20151007
  Receipt Date: 20151007
  Transmission Date: 20160304
  Serious: No
  Sender: FDA-Public Use
  Company Number: US-PAR PHARMACEUTICAL, INC-2015SCPR010526

PATIENT

DRUGS (1)
  1. FENTANYL TRANSDERMAL SYSTEM [Suspect]
     Active Substance: FENTANYL
     Indication: TUMOUR PAIN
     Dosage: UNK UNK, UNKNOWN
     Route: 062

REACTIONS (12)
  - Fear [Unknown]
  - Application site reaction [Unknown]
  - Application site pruritus [Unknown]
  - Application site scar [Unknown]
  - Application site rash [Unknown]
  - Application site warmth [Unknown]
  - Application site swelling [Unknown]
  - Application site discomfort [Unknown]
  - Application site erythema [Unknown]
  - Application site bruise [Unknown]
  - Pain [Unknown]
  - Feeling of despair [Unknown]
